FAERS Safety Report 10506205 (Version 2)
Quarter: 2014Q4

REPORT INFORMATION
  Report Type: Report from Study
  Country: JP (occurrence: JP)
  Receive Date: 20141009
  Receipt Date: 20141120
  Transmission Date: 20150528
  Serious: Yes (Other)
  Sender: FDA-Public Use
  Company Number: JP-AMGEN-JPNCT2014077537

PATIENT
  Sex: Female
  Weight: 45 kg

DRUGS (16)
  1. CALCIUM LACTATE [Concomitant]
     Active Substance: CALCIUM LACTATE
     Dosage: 1 G, QD
     Route: 048
     Dates: start: 20131004, end: 20140414
  2. PACLITAXEL. [Concomitant]
     Active Substance: PACLITAXEL
     Dosage: UNK
     Route: 065
     Dates: start: 20140218, end: 20140415
  3. XELODA [Concomitant]
     Active Substance: CAPECITABINE
     Dosage: UNK
     Route: 065
     Dates: start: 20140822
  4. AVASTIN [Concomitant]
     Active Substance: BEVACIZUMAB
     Dosage: UNK
     Route: 065
     Dates: start: 20140218, end: 20140502
  5. DENOSUMAB [Suspect]
     Active Substance: DENOSUMAB
     Indication: METASTASES TO BONE
     Dosage: 120 MG, UNK
     Route: 058
     Dates: start: 20131004, end: 20140822
  6. ALFAROL [Concomitant]
     Active Substance: ALFACALCIDOL
     Dosage: 1 MUG, QD
     Route: 048
     Dates: start: 20131004, end: 20140414
  7. DECADRON [Concomitant]
     Active Substance: DEXAMETHASONE
     Dosage: UNK
     Route: 048
     Dates: start: 20140514, end: 20140725
  8. NAUZELIN [Concomitant]
     Active Substance: DOMPERIDONE
     Dosage: 30 MG, QD
     Route: 048
     Dates: start: 20140325
  9. KEISHIKAJUTSUBUTO [Concomitant]
     Dosage: 7.5G/DAY
  10. CYCLOPHOSPHAMIDE. [Concomitant]
     Active Substance: CYCLOPHOSPHAMIDE
     Dosage: UNK
     Route: 065
     Dates: start: 20140513, end: 20140722
  11. EPIRUBICIN [Concomitant]
     Active Substance: EPIRUBICIN
     Dosage: UNK
     Route: 065
     Dates: start: 20140513, end: 20140722
  12. PROTECADIN [Concomitant]
     Active Substance: LAFUTIDINE
     Dosage: 20 MG, QD
     Route: 048
     Dates: start: 201402
  13. BEVACIZUMAB [Concomitant]
     Active Substance: BEVACIZUMAB
     Dosage: UNK
     Route: 065
     Dates: start: 20140218, end: 20140502
  14. HANGESHASHINTO                     /08016601/ [Concomitant]
     Dosage: 7.5 G, QD
     Route: 048
     Dates: start: 201404
  15. DENOTAS [Concomitant]
     Active Substance: CALCIUM CARBONATE\CHOLECALCIFEROL\MAGNESIUM CARBONATE
     Dosage: 2 DF, QD
     Route: 048
     Dates: start: 20140415
  16. KEISHIKAJUTSUBUTO [Concomitant]
     Dosage: 7.5 G, QD
     Route: 048
     Dates: start: 20140415

REACTIONS (5)
  - Periodontitis [Recovered/Resolved]
  - Nausea [Recovered/Resolved]
  - Hypertension [Recovered/Resolved]
  - Osteomyelitis [Recovered/Resolved]
  - Stomatitis [Recovered/Resolved]

NARRATIVE: CASE EVENT DATE: 20140414
